FAERS Safety Report 23014065 (Version 5)
Quarter: 2024Q2

REPORT INFORMATION
  Report Type: Report from Study
  Country: GB (occurrence: GB)
  Receive Date: 20231002
  Receipt Date: 20240625
  Transmission Date: 20240715
  Serious: Yes (Other)
  Sender: FDA-Public Use
  Company Number: GB-ABBVIE-4314788

PATIENT
  Sex: Female

DRUGS (7)
  1. SKYRIZI [Suspect]
     Active Substance: RISANKIZUMAB-RZAA
     Indication: Psoriasis
     Dosage: FORM STRENGTH: 150 MILLIGRAM
     Route: 058
  2. SKYRIZI [Suspect]
     Active Substance: RISANKIZUMAB-RZAA
     Dosage: FORM STRENGTH: 150 MILLIGRAM
     Route: 058
  3. SKYRIZI [Suspect]
     Active Substance: RISANKIZUMAB-RZAA
     Dosage: FORM STRENGTH: 150 MILLIGRAM
     Route: 058
  4. SKYRIZI [Suspect]
     Active Substance: RISANKIZUMAB-RZAA
     Dosage: FORM STRENGTH: 150 MILLIGRAM
     Route: 058
  5. SKYRIZI [Suspect]
     Active Substance: RISANKIZUMAB-RZAA
     Dosage: FORM STRENGTH: 150 MILLIGRAM
     Route: 058
  6. DOXYCYCLINE [Concomitant]
     Active Substance: DOXYCYCLINE\DOXYCYCLINE HYCLATE
     Indication: Product used for unknown indication
     Dates: end: 20230710
  7. METHOTREXATE [Concomitant]
     Active Substance: METHOTREXATE
     Indication: Psoriasis
     Route: 058
     Dates: start: 20240510

REACTIONS (22)
  - Osteitis deformans [Unknown]
  - Breast ulceration [Not Recovered/Not Resolved]
  - Therapeutic product effect incomplete [Unknown]
  - Psoriasis [Recovering/Resolving]
  - Insomnia [Unknown]
  - Skin discomfort [Unknown]
  - Neuropathy peripheral [Unknown]
  - Skin infection [Recovered/Resolved]
  - Nipple disorder [Unknown]
  - Discharge [Not Recovered/Not Resolved]
  - Pain [Unknown]
  - Nipple pain [Not Recovered/Not Resolved]
  - Skin wound [Unknown]
  - Skin maceration [Not Recovered/Not Resolved]
  - Nipple infection [Recovered/Resolved]
  - Skin erosion [Not Recovered/Not Resolved]
  - Restlessness [Unknown]
  - Emotional distress [Unknown]
  - Breast discharge [Recovered/Resolved]
  - Tearfulness [Unknown]
  - Rash macular [Unknown]
  - Medical device discomfort [Unknown]

NARRATIVE: CASE EVENT DATE: 20230101
